FAERS Safety Report 11053976 (Version 1)
Quarter: 2015Q2

REPORT INFORMATION
  Report Type: Spontaneous
  Country: NO (occurrence: NO)
  Receive Date: 20150422
  Receipt Date: 20150422
  Transmission Date: 20150821
  Serious: Yes (Other)
  Sender: FDA-Public Use
  Company Number: NO-ROCHE-1565012

PATIENT

DRUGS (1)
  1. AVASTIN [Suspect]
     Active Substance: BEVACIZUMAB
     Indication: OVARIAN CANCER
     Dosage: MOST OF THE PATIENT WERE DOSED AT 7.5 MG/KG
     Route: 065

REACTIONS (3)
  - Rhinorrhoea [Unknown]
  - Epistaxis [Unknown]
  - Eye discharge [Unknown]
